FAERS Safety Report 6691586-5 (Version None)
Quarter: 2010Q2

REPORT INFORMATION
  Report Type: 
  Country: None (occurrence: None)
  Receive Date: 20100422
  Receipt Date: 20100412
  Transmission Date: 20101027
  Serious: Yes (Other)
  Sender: FDA-Public Use
  Company Number: US-JNJFOC-20100404363

PATIENT
  Age: 82 Year
  Sex: Female
  Weight: 54.89 kg

DRUGS (4)
  1. EXTRA STRENGTH TYLENOL [Suspect]
     Indication: ARTHRITIS
  2. EXTRA STRENGTH TYLENOL [Suspect]
  3. EXTRA STRENGTH TYLENOL [Suspect]
     Indication: SCOLIOSIS
  4. EXTRA STRENGTH TYLENOL [Suspect]

REACTIONS (2)
  - DEAFNESS [None]
  - INTENTIONAL DRUG MISUSE [None]
